FAERS Safety Report 6529216-5 (Version None)
Quarter: 2010Q1

REPORT INFORMATION
  Report Type: 
  Country: None (occurrence: None)
  Receive Date: 20100107
  Receipt Date: 20091230
  Transmission Date: 20100710
  Serious: Yes (Death, Hospitalization)
  Sender: FDA-Public Use
  Company Number: US-ROCHE-634645

PATIENT
  Sex: Male
  Weight: 97.5 kg

DRUGS (9)
  1. CAPECITABINE [Suspect]
     Indication: GASTRIC CANCER
     Route: 048
     Dates: start: 20090430
  2. CAPECITABINE [Suspect]
     Route: 048
     Dates: start: 20090511, end: 20090713
  3. VYTORIN [Concomitant]
  4. METOPROLOL [Concomitant]
  5. TRIZOL [Concomitant]
  6. INSULIN [Concomitant]
  7. NEXIUM [Concomitant]
  8. EPIRUBICIN [Concomitant]
     Dates: start: 20090511
  9. OXALIPLATIN [Concomitant]
     Dates: start: 20090511

REACTIONS (10)
  - ASTHENIA [None]
  - DEATH [None]
  - DEHYDRATION [None]
  - DIARRHOEA [None]
  - DIVERTICULITIS [None]
  - DIVERTICULUM INTESTINAL [None]
  - DYSPNOEA EXERTIONAL [None]
  - HAEMOGLOBIN DECREASED [None]
  - ILEUS [None]
  - STOMATITIS [None]
